FAERS Safety Report 19755628 (Version 2)
Quarter: 2022Q1

REPORT INFORMATION
  Report Type: Spontaneous
  Country: CA (occurrence: CA)
  Receive Date: 20210827
  Receipt Date: 20220117
  Transmission Date: 20220423
  Serious: Yes (Hospitalization, Other)
  Sender: FDA-Public Use
  Company Number: CA-TEVA-2021-CA-1945900

PATIENT
  Age: 63 Year
  Sex: Male
  Weight: 71 kg

DRUGS (12)
  1. BICALUTAMIDE [Suspect]
     Active Substance: BICALUTAMIDE
     Indication: Prostate cancer
     Route: 065
  2. BICALUTAMIDE [Suspect]
     Active Substance: BICALUTAMIDE
     Route: 065
  3. ASPIRIN [Suspect]
     Active Substance: ASPIRIN
     Indication: Prophylaxis
     Route: 065
  4. PREDNISONE [Suspect]
     Active Substance: PREDNISONE
     Indication: Product used for unknown indication
     Dosage: 10 MILLIGRAM DAILY;
     Route: 048
  5. PREDNISONE [Suspect]
     Active Substance: PREDNISONE
     Dosage: 10 MILLIGRAM DAILY;
     Route: 048
  6. ABIRATERONE ACETATE [Suspect]
     Active Substance: ABIRATERONE ACETATE
     Dosage: 1000 MILLIGRAM DAILY;
     Route: 048
  7. CABAZITAXEL [Suspect]
     Active Substance: CABAZITAXEL
     Indication: Product used for unknown indication
     Route: 065
  8. CLOPIDOGREL BISULFATE [Suspect]
     Active Substance: CLOPIDOGREL BISULFATE
     Indication: Anticoagulant therapy
     Dosage: 75 MILLIGRAM DAILY;
     Route: 065
  9. CLOPIDOGREL BISULFATE [Suspect]
     Active Substance: CLOPIDOGREL BISULFATE
     Dosage: 75 MILLIGRAM DAILY;
     Route: 065
  10. ELIGARD [Suspect]
     Active Substance: LEUPROLIDE ACETATE
     Indication: Product used for unknown indication
     Route: 058
  11. ELIGARD [Suspect]
     Active Substance: LEUPROLIDE ACETATE
     Route: 058
  12. ZYTIGA [Suspect]
     Active Substance: ABIRATERONE ACETATE
     Indication: Product used for unknown indication
     Dosage: 1000 MILLIGRAM DAILY;
     Route: 048

REACTIONS (3)
  - Gastrointestinal haemorrhage [Recovered/Resolved]
  - Melaena [Recovered/Resolved]
  - Haemoglobin decreased [Recovered/Resolved]
